FAERS Safety Report 5582900-2 (Version None)
Quarter: 2008Q1

REPORT INFORMATION
  Report Type: 
  Country: None (occurrence: None)
  Receive Date: 20080107
  Receipt Date: 20071231
  Transmission Date: 20080703
  Serious: Yes (Hospitalization)
  Sender: FDA-Public Use
  Company Number: FR-RANBAXY-2008US-12369

PATIENT

DRUGS (11)
  1. VERAPAMIL [Suspect]
     Indication: HYPERTENSION
     Dosage: 240 MG, QD
     Route: 048
     Dates: start: 20070207
  2. CLONAZEPAM [Suspect]
     Indication: NEURALGIA
     Dosage: 2.5 MG/ML, UNK
     Route: 048
     Dates: start: 20070131
  3. COLCHICINE [Suspect]
     Indication: NEURALGIA
     Dosage: UNK
     Route: 048
     Dates: start: 20070215
  4. PREGABALINE [Suspect]
     Indication: NEURALGIA
     Dosage: 50 MG, UNK
     Route: 048
     Dates: start: 20070217, end: 20070219
  5. PREGABALINE [Suspect]
     Dosage: 25 MG, UNK
     Dates: start: 20070220, end: 20070226
  6. HYDROXYZINE [Concomitant]
     Indication: DRUG USE FOR UNKNOWN INDICATION
     Dosage: 25 MG, BID
     Route: 048
  7. MIANSERINE [Concomitant]
     Indication: DRUG USE FOR UNKNOWN INDICATION
     Dosage: 30 MG, QD
  8. FLUIDIONE [Concomitant]
     Indication: DRUG USE FOR UNKNOWN INDICATION
     Dosage: 20 MG, UNK
  9. SODIUM ENOXAPARINE [Concomitant]
     Indication: DRUG USE FOR UNKNOWN INDICATION
     Dosage: 0.5 ML, BID
     Route: 048
  10. RAMIPRIL [Concomitant]
     Indication: DRUG USE FOR UNKNOWN INDICATION
     Dosage: UNK
  11. UMPIDIL [Concomitant]
     Indication: DRUG USE FOR UNKNOWN INDICATION
     Dosage: 30 MG, Q4H

REACTIONS (3)
  - CONFUSIONAL STATE [None]
  - CYTOLYTIC HEPATITIS [None]
  - NEURALGIA [None]
